FAERS Safety Report 26107896 (Version 1)
Quarter: 2025Q4

REPORT INFORMATION
  Report Type: Spontaneous
  Country: US (occurrence: None)
  Receive Date: 20251130
  Receipt Date: 20251130
  Transmission Date: 20260118
  Serious: Yes (Hospitalization)
  Sender: FDA-CTU
  Company Number: None

PATIENT
  Age: 68 Year
  Sex: Female
  Weight: 67.75 kg

DRUGS (3)
  1. CISPLATIN [Suspect]
     Active Substance: CISPLATIN
     Dates: end: 20250721
  2. DURVALUMAB [Suspect]
     Active Substance: DURVALUMAB
     Dates: end: 20251017
  3. ALIMTA [Suspect]
     Active Substance: PEMETREXED DISODIUM
     Dates: end: 20250721

REACTIONS (3)
  - Encephalopathy [None]
  - Metastases to central nervous system [None]
  - Therapy interrupted [None]

NARRATIVE: CASE EVENT DATE: 20251123
